FAERS Safety Report 10771574 (Version 2)
Quarter: 2015Q3

REPORT INFORMATION
  Report Type: Spontaneous
  Country: IT (occurrence: FR)
  Receive Date: 20150206
  Receipt Date: 20150820
  Transmission Date: 20151125
  Serious: Yes (Hospitalization, Disabling)
  Sender: FDA-Public Use
  Company Number: FR-FRI-1000074290

PATIENT
  Age: 65 Year
  Sex: Female

DRUGS (12)
  1. NEBIVOLOL. [Suspect]
     Active Substance: NEBIVOLOL
     Indication: CARDIAC FAILURE
     Dosage: 2.5 MG
     Route: 048
  2. BOSULIF [Suspect]
     Active Substance: BOSUTINIB MONOHYDRATE
     Indication: CHRONIC MYELOID LEUKAEMIA
     Dosage: 500 MG
     Route: 048
     Dates: start: 201406, end: 201503
  3. BENTNESOL PHOSPHATE [Suspect]
     Active Substance: BETAMETHASONE SODIUM PHOSPHATE
     Indication: DEEP VEIN THROMBOSIS
     Dosage: 0.5 MG
     Route: 048
  4. INEXIUM [Suspect]
     Active Substance: ESOMEPRAZOLE
     Indication: PRODUCT USED FOR UNKNOWN INDICATION
     Dosage: 20 MG
     Route: 048
  5. PROZAC [Suspect]
     Active Substance: FLUOXETINE HYDROCHLORIDE
     Indication: PRODUCT USED FOR UNKNOWN INDICATION
     Route: 048
  6. LEXOMIL [Suspect]
     Active Substance: BROMAZEPAM
     Indication: PRODUCT USED FOR UNKNOWN INDICATION
     Dosage: 12 MG
     Route: 048
  7. ALDACTONE [Suspect]
     Active Substance: SPIRONOLACTONE
     Indication: PRODUCT USED FOR UNKNOWN INDICATION
     Dosage: 50 MG
     Route: 048
  8. MICARDIS [Suspect]
     Active Substance: TELMISARTAN
     Indication: HYPERTENSION
     Dosage: 80 MG
     Route: 048
  9. EZETROL [Suspect]
     Active Substance: EZETIMIBE
     Indication: DYSLIPIDAEMIA
     Dosage: 10 MG
     Route: 048
  10. PREVISCAN [Suspect]
     Active Substance: FLUINDIONE
     Dosage: 15 MG
     Route: 048
  11. IXPRIM [Suspect]
     Active Substance: ACETAMINOPHEN\TRAMADOL HYDROCHLORIDE
     Indication: PRODUCT USED FOR UNKNOWN INDICATION
     Route: 048
  12. PREVISCAN [Suspect]
     Active Substance: FLUINDIONE
     Indication: DEEP VEIN THROMBOSIS
     Dosage: 20 MG
     Route: 048

REACTIONS (4)
  - Toe amputation [Recovered/Resolved with Sequelae]
  - Skin ulcer [Recovered/Resolved with Sequelae]
  - Lymphangiectasia [Recovered/Resolved with Sequelae]
  - Dry gangrene [Recovered/Resolved with Sequelae]

NARRATIVE: CASE EVENT DATE: 201411
